FAERS Safety Report 8519184 (Version 3)
Quarter: 2012Q4

REPORT INFORMATION
  Report Type: 
  Country: CA (occurrence: CA)
  Receive Date: 20120418
  Receipt Date: 20121129
  Transmission Date: 20130627
  Serious: Yes (Death, Other)
  Sender: FDA-Public Use
  Company Number: PHHY2012CA032178

PATIENT
  Age: 69 Year
  Sex: Male

DRUGS (1)
  1. CLOZARIL [Suspect]
     Route: 048
     Dates: start: 20040413

REACTIONS (2)
  - Death [Fatal]
  - General physical health deterioration [Unknown]
